FAERS Safety Report 6337240-0 (Version None)
Quarter: 2009Q3

REPORT INFORMATION
  Report Type: 
  Country: None (occurrence: None)
  Receive Date: 20090902
  Receipt Date: 20090825
  Transmission Date: 20100115
  Serious: Yes (Other)
  Sender: FDA-Public Use
  Company Number: US-BIOGENIDEC-2009BI022691

PATIENT
  Sex: Female

DRUGS (1)
  1. TYSABRI [Suspect]
     Indication: MULTIPLE SCLEROSIS
     Route: 042
     Dates: start: 20070925

REACTIONS (5)
  - ARTHRALGIA [None]
  - HYSTERECTOMY [None]
  - MUSCLE TWITCHING [None]
  - PAIN IN EXTREMITY [None]
  - POLLAKIURIA [None]
